FAERS Safety Report 8372199-6 (Version None)
Quarter: 2012Q2

REPORT INFORMATION
  Report Type: 
  Country: None (occurrence: None)
  Receive Date: 20120521
  Receipt Date: 20120511
  Transmission Date: 20120825
  Serious: Yes (Hospitalization)
  Sender: FDA-Public Use
  Company Number: US-BIOGENIDEC-2012BI014531

PATIENT
  Sex: Female

DRUGS (2)
  1. AVONEX [Suspect]
     Indication: MULTIPLE SCLEROSIS
     Route: 030
     Dates: start: 20100519, end: 20111101
  2. CITRACAL [Concomitant]

REACTIONS (4)
  - ALCOHOL ABUSE [None]
  - DEMENTIA [None]
  - DRUG ABUSE [None]
  - FEELING COLD [None]
